FAERS Safety Report 5494569-6 (Version None)
Quarter: 2007Q4

REPORT INFORMATION
  Report Type: 
  Country: None (occurrence: None)
  Receive Date: 20071024
  Receipt Date: 20071012
  Transmission Date: 20080405
  Serious: Yes (Other)
  Sender: FDA-Public Use
  Company Number: US-ELI_LILLY_AND_COMPANY-US200709000538

PATIENT
  Sex: Female

DRUGS (4)
  1. FORTEO [Suspect]
     Indication: OSTEOPOROSIS
     Dates: start: 20070715, end: 20070730
  2. TENORMIN [Concomitant]
  3. TEMAZEPAM [Concomitant]
     Indication: INSOMNIA
  4. PLAVIX [Concomitant]
     Dosage: 75 MG, UNK

REACTIONS (12)
  - CARDIAC DISORDER [None]
  - DYSPNOEA [None]
  - EYE OEDEMA [None]
  - EYELID OEDEMA [None]
  - FACE OEDEMA [None]
  - HYPERSENSITIVITY [None]
  - INSOMNIA [None]
  - LEFT VENTRICULAR DYSFUNCTION [None]
  - PULMONARY HYPERTENSION [None]
  - RASH [None]
  - URTICARIA [None]
  - VISUAL DISTURBANCE [None]
